FAERS Safety Report 9804100 (Version 1)
Quarter: 2014Q1

REPORT INFORMATION
  Report Type: Spontaneous
  Country: US (occurrence: US)
  Receive Date: 20140108
  Receipt Date: 20140108
  Transmission Date: 20141002
  Serious: No
  Sender: FDA-Public Use
  Company Number: US-TEVA-454137USA

PATIENT
  Sex: Female
  Weight: 103.06 kg

DRUGS (9)
  1. NUVIGIL [Suspect]
     Indication: PRODUCT USED FOR UNKNOWN INDICATION
     Dosage: 250 MILLIGRAM DAILY;
     Route: 048
  2. AMPYRA [Suspect]
     Indication: PRODUCT USED FOR UNKNOWN INDICATION
     Dosage: 10 MILLIGRAM DAILY;
     Route: 048
     Dates: start: 20120216
  3. REBIF [Suspect]
     Indication: PRODUCT USED FOR UNKNOWN INDICATION
     Dosage: THREE TIMES WEEKLY
     Route: 058
  4. TEGRETOL [Suspect]
     Indication: PRODUCT USED FOR UNKNOWN INDICATION
     Dosage: 200 MILLIGRAM DAILY;
     Route: 048
  5. ATENOLOL [Concomitant]
     Dosage: 50 MILLIGRAM DAILY;
     Route: 048
  6. BENAZEPRIL [Concomitant]
     Dosage: 40 MILLIGRAM DAILY;
     Route: 048
  7. GABAPENTIN [Concomitant]
     Dosage: 2400 MILLIGRAM DAILY;
     Route: 048
  8. NIFEDIPINE [Concomitant]
     Dosage: 90 MILLIGRAM DAILY;
     Route: 048
  9. CYMBALTA [Concomitant]
     Dosage: 60 MILLIGRAM DAILY;
     Route: 048

REACTIONS (3)
  - Trigeminal neuralgia [Recovering/Resolving]
  - Speech disorder [Recovering/Resolving]
  - Facial pain [Recovering/Resolving]
